FAERS Safety Report 18186884 (Version 1)
Quarter: 2020Q3

REPORT INFORMATION
  Report Type: Spontaneous
  Country: US (occurrence: US)
  Receive Date: 20200822
  Receipt Date: 20200822
  Transmission Date: 20201103
  Serious: Yes (Other)
  Sender: FDA-Public Use
  Company Number: None

PATIENT
  Age: 41 Year
  Sex: Female

DRUGS (1)
  1. HUMIRA [Suspect]
     Active Substance: ADALIMUMAB
     Indication: RHEUMATOID ARTHRITIS
     Route: 058
     Dates: start: 20200622

REACTIONS (4)
  - Accidental exposure to product [None]
  - Needle issue [None]
  - Wrong technique in product usage process [None]
  - Injury associated with device [None]

NARRATIVE: CASE EVENT DATE: 20200821
